FAERS Safety Report 12958396 (Version 1)
Quarter: 2016Q4

REPORT INFORMATION
  Report Type: Spontaneous
  Country: US (occurrence: US)
  Receive Date: 20161121
  Receipt Date: 20161121
  Transmission Date: 20170207
  Serious: No
  Sender: FDA-Public Use
  Company Number: US-TEVA-607716USA

PATIENT
  Age: 57 Year
  Sex: Female

DRUGS (1)
  1. ONDANSETRON [Suspect]
     Active Substance: ONDANSETRON
     Route: 048

REACTIONS (2)
  - Heart rate increased [Unknown]
  - Constipation [Unknown]

NARRATIVE: CASE EVENT DATE: 20151028
